FAERS Safety Report 18325599 (Version 1)
Quarter: 2020Q3

REPORT INFORMATION
  Report Type: Spontaneous
  Country: US (occurrence: US)
  Receive Date: 20200929
  Receipt Date: 20200929
  Transmission Date: 20201103
  Serious: Yes (Other)
  Sender: FDA-Public Use
  Company Number: US-PFIZER INC-2020372661

PATIENT
  Sex: Female

DRUGS (2)
  1. IBRANCE [Suspect]
     Active Substance: PALBOCICLIB
     Dosage: 75 MG
  2. IBRANCE [Suspect]
     Active Substance: PALBOCICLIB
     Indication: BREAST CANCER FEMALE
     Dosage: 125 MG

REACTIONS (8)
  - Neoplasm progression [Unknown]
  - Arthralgia [Unknown]
  - Joint stiffness [Unknown]
  - Dysstasia [Unknown]
  - Joint swelling [Unknown]
  - Nervousness [Unknown]
  - Infection [Unknown]
  - Swelling [Unknown]
